FAERS Safety Report 10305032 (Version 2)
Quarter: 2014Q3

REPORT INFORMATION
  Report Type: Spontaneous
  Country: US (occurrence: US)
  Receive Date: 20140715
  Receipt Date: 20140715
  Transmission Date: 20150326
  Serious: Yes (Other)
  Sender: FDA-Public Use
  Company Number: US-RB-067177-14

PATIENT
  Age: 70 Year
  Sex: Female

DRUGS (2)
  1. CLEARASIL ADULT ACNE TREATMENT CREAM [Suspect]
     Active Substance: BENZOYL PEROXIDE
     Indication: PRODUCT USED FOR UNKNOWN INDICATION
     Dosage: APPLIED ONLY ONCE
     Route: 061
     Dates: start: 20140611
  2. CLEARASIL NOS [Suspect]
     Active Substance: BENZOYL PEROXIDE OR RESORCINOL AND SULFUR OR SALICYLIC ACID
     Indication: PRODUCT USED FOR UNKNOWN INDICATION

REACTIONS (6)
  - Eye swelling [Recovered/Resolved]
  - Swelling face [Not Recovered/Not Resolved]
  - Burning sensation [Unknown]
  - Erythema [Recovered/Resolved]
  - Application site pruritus [Not Recovered/Not Resolved]
  - Erythema [Unknown]

NARRATIVE: CASE EVENT DATE: 20140611
